FAERS Safety Report 9678262 (Version 1)
Quarter: 2013Q4

REPORT INFORMATION
  Report Type: Spontaneous
  Country: US (occurrence: None)
  Receive Date: 20131106
  Receipt Date: 20131106
  Transmission Date: 20140711
  Serious: Yes (Hospitalization)
  Sender: FDA-Public Use
  Company Number: 1273531

PATIENT
  Age: 67 Year
  Sex: Male

DRUGS (1)
  1. CHLORASEPTIC [Suspect]
     Indication: COUGH
     Dosage: ACCIDENTAL INGESTION
     Dates: start: 20131028

REACTIONS (2)
  - Asthenia [None]
  - Confusional state [None]
